FAERS Safety Report 7878642-0 (Version None)
Quarter: 2011Q4

REPORT INFORMATION
  Report Type: 
  Country: None (occurrence: None)
  Receive Date: 20111101
  Receipt Date: 20111021
  Transmission Date: 20120403
  Serious: Yes (Other)
  Sender: FDA-Public Use
  Company Number: US-CUBIST-2011S1000706

PATIENT

DRUGS (2)
  1. CUBICIN [Suspect]
     Indication: ARTHRITIS INFECTIVE
     Dosage: DOSE UNIT:U UNKNOWN
     Route: 065
  2. CUBICIN [Suspect]
     Indication: STAPHYLOCOCCAL INFECTION
     Dosage: DOSE UNIT:U UNKNOWN
     Route: 065

REACTIONS (1)
  - MELAENA [None]
